FAERS Safety Report 11475145 (Version 24)
Quarter: 2019Q2

REPORT INFORMATION
  Report Type: Report from Study
  Country: CA (occurrence: CA)
  Receive Date: 20150908
  Receipt Date: 20190619
  Transmission Date: 20190711
  Serious: Yes (Other)
  Sender: FDA-Public Use
  Company Number: CA-ROCHE-1188683

PATIENT
  Age: 29 Year
  Sex: Female
  Weight: 73 kg

DRUGS (24)
  1. BRICANYL [Concomitant]
     Active Substance: TERBUTALINE SULFATE
  2. METHYLPREDNISOLONE. [Concomitant]
     Active Substance: METHYLPREDNISOLONE
     Indication: PREMEDICATION
     Route: 042
     Dates: start: 20120821, end: 20120821
  3. ACTEMRA [Suspect]
     Active Substance: TOCILIZUMAB
     Route: 042
     Dates: start: 2015
  4. TYLENOL [Concomitant]
     Active Substance: ACETAMINOPHEN
     Route: 048
     Dates: start: 20120807, end: 20120821
  5. SOLU-MEDROL [Concomitant]
     Active Substance: METHYLPREDNISOLONE SODIUM SUCCINATE
     Route: 042
     Dates: start: 20120807, end: 20120821
  6. METHOTREXATE. [Concomitant]
     Active Substance: METHOTREXATE
  7. ACTEMRA [Suspect]
     Active Substance: TOCILIZUMAB
     Route: 042
     Dates: start: 20130730
  8. RITUXAN [Suspect]
     Active Substance: RITUXIMAB
     Indication: RHEUMATOID ARTHRITIS
     Route: 042
     Dates: start: 20120807, end: 20120821
  9. CELEBREX [Concomitant]
     Active Substance: CELECOXIB
  10. CELEBREX [Concomitant]
     Active Substance: CELECOXIB
  11. ACTEMRA [Suspect]
     Active Substance: TOCILIZUMAB
     Indication: RHEUMATOID ARTHRITIS
     Route: 042
     Dates: start: 20130312
  12. PNEUMOCOCCAL VACCINE POLYVALENT NOS [Suspect]
     Active Substance: PNEUMOCOCCAL VACCINE POLYVALENT
     Indication: PRODUCT USED FOR UNKNOWN INDICATION
     Route: 065
  13. BENADRYL [Concomitant]
     Active Substance: DIPHENHYDRAMINE HYDROCHLORIDE
     Route: 048
     Dates: start: 20120807, end: 20120821
  14. PULMICORT TURBUHALER [Concomitant]
     Active Substance: BUDESONIDE
  15. ACTEMRA [Suspect]
     Active Substance: TOCILIZUMAB
     Route: 042
     Dates: start: 20150903
  16. FLAGYL [Suspect]
     Active Substance: METRONIDAZOLE\METRONIDAZOLE HYDROCHLORIDE
     Indication: PRODUCT USED FOR UNKNOWN INDICATION
     Route: 065
  17. MARVELON [Concomitant]
     Active Substance: DESOGESTREL\ETHINYL ESTRADIOL
  18. VALTREX [Concomitant]
     Active Substance: VALACYCLOVIR HYDROCHLORIDE
  19. FOLIC ACID. [Concomitant]
     Active Substance: FOLIC ACID
  20. ACTEMRA [Suspect]
     Active Substance: TOCILIZUMAB
     Route: 042
     Dates: start: 20150528
  21. FLONASE [Concomitant]
     Active Substance: FLUTICASONE PROPIONATE
  22. DIPHENHYDRAMINE HCL [Concomitant]
     Active Substance: DIPHENHYDRAMINE HYDROCHLORIDE
     Indication: PREMEDICATION
     Route: 048
     Dates: start: 20120821, end: 20120821
  23. ACTEMRA [Suspect]
     Active Substance: TOCILIZUMAB
     Route: 042
     Dates: start: 20150625
  24. ACETAMINOPHEN. [Concomitant]
     Active Substance: ACETAMINOPHEN
     Indication: PREMEDICATION
     Route: 048
     Dates: start: 20120821, end: 20120821

REACTIONS (24)
  - Infusion related reaction [Unknown]
  - Injection related reaction [Recovered/Resolved]
  - Rash [Recovered/Resolved]
  - Hypotension [Unknown]
  - Cellulitis [Not Recovered/Not Resolved]
  - Arthralgia [Not Recovered/Not Resolved]
  - Lower respiratory tract infection [Recovering/Resolving]
  - Acne [Unknown]
  - Subcutaneous abscess [Recovered/Resolved]
  - Pain [Unknown]
  - Cough [Recovered/Resolved]
  - Blood pressure diastolic decreased [Unknown]
  - Blood pressure diastolic decreased [Unknown]
  - Bacterial vaginosis [Unknown]
  - Skin disorder [Unknown]
  - Arthropod bite [Unknown]
  - Drug ineffective [Unknown]
  - Neutropenia [Unknown]
  - Therapeutic response decreased [Unknown]
  - Upper-airway cough syndrome [Recovered/Resolved]
  - Body temperature decreased [Unknown]
  - Ingrown hair [Unknown]
  - Body temperature decreased [Unknown]
  - Weight increased [Unknown]

NARRATIVE: CASE EVENT DATE: 20130603
